FAERS Safety Report 9113291 (Version 1)
Quarter: 2013Q1

REPORT INFORMATION
  Report Type: Spontaneous
  Country: FI (occurrence: FI)
  Receive Date: 20130131
  Receipt Date: 20130131
  Transmission Date: 20140127
  Serious: Yes (Hospitalization)
  Sender: FDA-Public Use
  Company Number: FI-ASTRAZENECA-2012SE85486

PATIENT
  Age: 44 Year
  Sex: Male

DRUGS (6)
  1. BRILIQUE [Suspect]
     Indication: THROMBOSIS PROPHYLAXIS
     Route: 048
     Dates: start: 201210, end: 201210
  2. BRILIQUE [Suspect]
     Indication: THROMBOSIS PROPHYLAXIS
     Route: 048
     Dates: start: 201210
  3. ATORVASTATIN [Concomitant]
     Indication: BLOOD CHOLESTEROL ABNORMAL
  4. ATORVASTATIN [Concomitant]
     Indication: BLOOD CHOLESTEROL ABNORMAL
     Dates: start: 201208
  5. PRIMASPAN [Concomitant]
     Dates: start: 201208
  6. EZETROL [Concomitant]

REACTIONS (5)
  - Transaminases increased [Not Recovered/Not Resolved]
  - Contusion [Recovering/Resolving]
  - Haemorrhage [Unknown]
  - Throat irritation [Recovering/Resolving]
  - Paraesthesia [Recovering/Resolving]
